FAERS Safety Report 12155499 (Version 6)
Quarter: 2016Q2

REPORT INFORMATION
  Report Type: Report from Study
  Country: IT (occurrence: IT)
  Receive Date: 20160307
  Receipt Date: 20160601
  Transmission Date: 20160815
  Serious: Yes (Death, Hospitalization)
  Sender: FDA-Public Use
  Company Number: IT-JNJFOC-20160304805

PATIENT
  Age: 64 Year
  Sex: Male

DRUGS (5)
  1. CARDURA [Concomitant]
     Active Substance: DOXAZOSIN MESYLATE
     Indication: HYPERTENSION
     Route: 048
     Dates: start: 20080101, end: 20160228
  2. ATORVASTATIN [Concomitant]
     Active Substance: ATORVASTATIN
     Indication: HYPERTENSION
     Route: 048
     Dates: start: 20080101, end: 20160228
  3. TRABECTEDIN [Suspect]
     Active Substance: TRABECTEDIN
     Route: 042
  4. TRABECTEDIN [Suspect]
     Active Substance: TRABECTEDIN
     Indication: SARCOMATOID MESOTHELIOMA
     Dosage: TOTAL DOSE: 2.37 MG, 3 CYCLES
     Route: 042
     Dates: start: 20151231, end: 20160211
  5. VASORETIC [Concomitant]
     Active Substance: ENALAPRIL MALEATE\HYDROCHLOROTHIAZIDE
     Indication: HYPERTENSION
     Dosage: DOSE 20+12.5
     Route: 048
     Dates: start: 20080101, end: 20160228

REACTIONS (6)
  - Pneumonitis [Fatal]
  - Pleural effusion [None]
  - Neutropenia [None]
  - Pneumothorax [None]
  - Respiratory failure [None]
  - Streptococcus test positive [None]

NARRATIVE: CASE EVENT DATE: 20160224
